FAERS Safety Report 8560024-X (Version None)
Quarter: 2012Q3

REPORT INFORMATION
  Report Type: 
  Country: None (occurrence: None)
  Receive Date: 20120802
  Receipt Date: 20120731
  Transmission Date: 20120928
  Serious: Yes (Death, Other)
  Sender: FDA-Public Use
  Company Number: JP-PFIZER INC-2012162798

PATIENT
  Sex: Male

DRUGS (5)
  1. GOODMIN [Suspect]
     Dosage: 0.25 MG, 1X/DAY
     Route: 048
  2. CHLORPROMAZINE HCL [Suspect]
     Dosage: 1 DF, 1X/DAY
  3. ZOLOFT [Suspect]
     Dosage: 100 MG DAILY
     Route: 048
  4. ZOPICLONE [Suspect]
     Dosage: 10 MG, 1X/DAY
     Route: 048
  5. FLUNITRAZEPAM [Suspect]
     Dosage: 2 MG DAILY
     Route: 048

REACTIONS (2)
  - DEATH [None]
  - ALCOHOL USE [None]
